FAERS Safety Report 6790472-X (Version None)
Quarter: 2010Q2

REPORT INFORMATION
  Report Type: 
  Country: None (occurrence: None)
  Receive Date: 20100624
  Receipt Date: 20100614
  Transmission Date: 20101027
  Serious: Yes (Hospitalization)
  Sender: FDA-Public Use
  Company Number: US-ROCHE-705281

PATIENT
  Sex: Male

DRUGS (3)
  1. BEVACIZUMAB [Suspect]
     Dosage: LAST PROTOCOL TREATMENT DATE REPORTED AS 29 MAR 2010, FREQUNCY: 1 WEEK ON 2 WEEK OFF.
     Route: 065
     Dates: start: 20100111
  2. CISPLATIN [Suspect]
     Dosage: LAST  PROTOCOL TREATMENT DATE: 29 MAR 2010, FREQUENCY: 2 WEEK ON 1 WEEK OFF.
     Route: 065
     Dates: start: 20100111
  3. IRINOTECAN [Suspect]
     Dosage: LAST PROTOCOL TREATMENT DATE: 29 MARCH 2010, FREQUENCY: 2 WEEK ON 1 WEEK OFF.
     Route: 065
     Dates: start: 20100111

REACTIONS (4)
  - DEHYDRATION [None]
  - OESOPHAGITIS [None]
  - PAIN IN EXTREMITY [None]
  - THROMBOSIS [None]
